FAERS Safety Report 6491906-0 (Version None)
Quarter: 2009Q4

REPORT INFORMATION
  Report Type: 
  Country: None (occurrence: None)
  Receive Date: 20091125
  Receipt Date: 20090819
  Transmission Date: 20100525
  Serious: Yes (Other)
  Sender: FDA-Public Use
  Company Number: 2009BH013019

PATIENT
  Age: 79 Year
  Sex: Male
  Weight: 99.5 kg

DRUGS (23)
  1. DIANEAL [Suspect]
     Indication: PERITONEAL DIALYSIS
     Dosage: 16 L ; UNK ; IP
     Route: 033
     Dates: start: 20030602, end: 20090801
  2. EPOGEN [Concomitant]
  3. ACETAMINOPHEN [Concomitant]
  4. DEXTROSE [Concomitant]
  5. DIPHENHYDRAMINE HCL [Concomitant]
  6. ENGERIX-B [Concomitant]
  7. INFLUENZA VACCINE [Concomitant]
  8. HEPARIN [Concomitant]
  9. NITROGLYCERIN [Concomitant]
  10. OXYGEN [Concomitant]
  11. PNEUMOCOCCAL VACCINE [Concomitant]
  12. SILVER NITRATE [Concomitant]
  13. SOLU-CORTEF [Concomitant]
  14. VENOFER [Concomitant]
  15. ALLOPURINOL [Concomitant]
  16. CARDIZEM [Concomitant]
  17. COLACE [Concomitant]
  18. COREG [Concomitant]
  19. LIPITOR [Concomitant]
  20. MIDODRINE HYDROCHLORIDE [Concomitant]
  21. NEPHRO-VITE RX [Concomitant]
  22. NYSTATIN [Concomitant]
  23. REGLAN [Concomitant]

REACTIONS (1)
  - PERITONITIS BACTERIAL [None]
